FAERS Safety Report 23388203 (Version 5)
Quarter: 2024Q2

REPORT INFORMATION
  Report Type: Report from Study
  Country: US (occurrence: US)
  Receive Date: 20240110
  Receipt Date: 20240405
  Transmission Date: 20240716
  Serious: Yes (Hospitalization)
  Sender: FDA-Public Use
  Company Number: US-Eisai-EC-2024-156684

PATIENT
  Age: 65 Year
  Sex: Male

DRUGS (8)
  1. LENVIMA [Suspect]
     Active Substance: LENVATINIB
     Indication: Hepatic cancer
     Route: 048
     Dates: start: 20210523
  2. LENVIMA [Suspect]
     Active Substance: LENVATINIB
     Route: 048
     Dates: start: 202306, end: 20231218
  3. LENVIMA [Suspect]
     Active Substance: LENVATINIB
     Route: 048
     Dates: start: 20231229
  4. LENVIMA [Suspect]
     Active Substance: LENVATINIB
     Dosage: (HELD FOR 9 DAYS)
     Route: 048
     Dates: end: 202403
  5. LENVIMA [Suspect]
     Active Substance: LENVATINIB
     Route: 048
     Dates: start: 202403
  6. KEYTRUDA [Concomitant]
     Active Substance: PEMBROLIZUMAB
     Indication: Product used for unknown indication
     Dosage: DOSE  UNKNOWN
     Route: 042
     Dates: end: 2023
  7. ADVIL [Concomitant]
     Active Substance: IBUPROFEN
     Indication: Product used for unknown indication
     Dosage: DOSE  AND FREQUENCY UNKNOWN
     Route: 065
  8. IMODIUM [Concomitant]
     Active Substance: LOPERAMIDE HYDROCHLORIDE
     Indication: Product used for unknown indication
     Dosage: DOSE  AND FREQUENCY UNKNOWN
     Route: 065

REACTIONS (4)
  - Hypotension [Recovered/Resolved]
  - Renal failure [Recovered/Resolved]
  - Diarrhoea [Not Recovered/Not Resolved]
  - Sepsis [Recovering/Resolving]

NARRATIVE: CASE EVENT DATE: 20231201
